FAERS Safety Report 24753157 (Version 2)
Quarter: 2025Q1

REPORT INFORMATION
  Report Type: Spontaneous
  Country: JP (occurrence: JP)
  Receive Date: 20241219
  Receipt Date: 20250116
  Transmission Date: 20250408
  Serious: Yes (Death)
  Sender: RIGEL PHARMACEUTICALS
  Company Number: JP-KISSEI-TL20240759_P_1

PATIENT
  Age: 9 Decade

DRUGS (3)
  1. TAVALISSE [Suspect]
     Active Substance: FOSTAMATINIB
     Indication: Immune thrombocytopenia
     Dosage: 200 MG, QD
     Route: 048
     Dates: end: 202412
  2. TAVALISSE [Suspect]
     Active Substance: FOSTAMATINIB
     Dosage: 300 MG, QD
     Route: 048
     Dates: start: 202412
  3. ROMIPLOSTIM [Concomitant]
     Active Substance: ROMIPLOSTIM
     Indication: Immune thrombocytopenia
     Route: 058

REACTIONS (1)
  - Death [Fatal]

NARRATIVE: CASE EVENT DATE: 20241201
